FAERS Safety Report 7720841-2 (Version None)
Quarter: 2011Q3

REPORT INFORMATION
  Report Type: 
  Country: None (occurrence: None)
  Receive Date: 20110825
  Receipt Date: 20110810
  Transmission Date: 20111222
  Serious: Yes (Hospitalization)
  Sender: FDA-Public Use
  Company Number: 15965775

PATIENT
  Age: 73 Year
  Sex: Female

DRUGS (7)
  1. ENOXAPARIN SODIUM [Suspect]
     Indication: EMBOLISM
     Dosage: 210 MILLIGRAM 1 DAY
     Route: 058
     Dates: start: 20110803
  2. METOPROLOL SUCCINATE [Concomitant]
  3. PLACEBO [Suspect]
     Indication: EMBOLISM
     Dates: start: 20110803
  4. APIXABAN [Suspect]
     Indication: EMBOLISM
     Dosage: 20 MILLIGRAM 1 DAY
     Route: 048
     Dates: start: 20110803
  5. WARFARIN SODIUM [Suspect]
     Indication: EMBOLISM
     Dosage: 6 MILLIGRAM 1 DAY
     Route: 048
     Dates: start: 20110803
  6. RAMIPRIL [Concomitant]
  7. TORSEMIDE [Concomitant]

REACTIONS (1)
  - ABDOMINAL WALL HAEMATOMA [None]
